FAERS Safety Report 24571359 (Version 2)
Quarter: 2025Q4

REPORT INFORMATION
  Report Type: Report from Study
  Country: EU (occurrence: EU)
  Receive Date: 20241101
  Receipt Date: 20251015
  Transmission Date: 20260117
  Serious: No
  Sender: AUROBINDO
  Company Number: EU-AFSSAPS-PP2024000990

PATIENT
  Age: 41 Year
  Sex: Male

DRUGS (1)
  1. DOXYCYCLINE [Suspect]
     Active Substance: DOXYCYCLINE
     Indication: Sexually transmitted disease
     Dosage: UNKNOWN DOSE
     Route: 048

REACTIONS (2)
  - Fixed eruption [Recovered/Resolved]
  - Drug eruption [Recovering/Resolving]
